FAERS Safety Report 7999108-3 (Version None)
Quarter: 2011Q4

REPORT INFORMATION
  Report Type: 
  Country: None (occurrence: None)
  Receive Date: 20111221
  Receipt Date: 20111028
  Transmission Date: 20120403
  Serious: Yes (Hospitalization)
  Sender: FDA-Public Use
  Company Number: US-PURDUE-USA-2011-0079999

PATIENT
  Sex: Male

DRUGS (1)
  1. OXYCONTIN [Suspect]
     Indication: PAIN MANAGEMENT
     Dosage: UNK
     Dates: start: 20020801, end: 20070601

REACTIONS (4)
  - HOSPITALISATION [None]
  - ROAD TRAFFIC ACCIDENT [None]
  - DRUG WITHDRAWAL SYNDROME [None]
  - PAIN [None]
